FAERS Safety Report 18529994 (Version 1)
Quarter: 2020Q4

REPORT INFORMATION
  Report Type: Spontaneous
  Country: US (occurrence: US)
  Receive Date: 20201120
  Receipt Date: 20201120
  Transmission Date: 20210114
  Serious: No
  Sender: FDA-Public Use
  Company Number: US-NOVOPROD-700851

PATIENT
  Age: 66 Year
  Sex: Female

DRUGS (1)
  1. NOVOLOG [Suspect]
     Active Substance: INSULIN ASPART
     Indication: TYPE 2 DIABETES MELLITUS
     Dosage: SLIDING SCALE
     Route: 058
     Dates: start: 2016

REACTIONS (4)
  - Memory impairment [Recovering/Resolving]
  - Dehydration [Recovering/Resolving]
  - Fall [Recovered/Resolved]
  - Stress [Recovering/Resolving]

NARRATIVE: CASE EVENT DATE: 2018
